FAERS Safety Report 6110719-2 (Version None)
Quarter: 2009Q1

REPORT INFORMATION
  Report Type: 
  Country: None (occurrence: None)
  Receive Date: 20090309
  Receipt Date: 20090227
  Transmission Date: 20090719
  Serious: Yes (Hospitalization)
  Sender: FDA-Public Use
  Company Number: TAP2009Q00153

PATIENT
  Age: 71 Year
  Sex: Male
  Weight: 92.27 kg

DRUGS (1)
  1. PREVACID [Suspect]
     Indication: DYSPEPSIA
     Dosage: 30 MG (30 MG 1 IN 1 D), PER ORAL
     Route: 048
     Dates: start: 20081001

REACTIONS (2)
  - CARDIAC DISORDER [None]
  - FLUID RETENTION [None]
